FAERS Safety Report 7329329-4 (Version None)
Quarter: 2011Q1

REPORT INFORMATION
  Report Type: 
  Country: None (occurrence: None)
  Receive Date: 20110303
  Receipt Date: 20110222
  Transmission Date: 20110831
  Serious: Yes (Hospitalization, Disabling, Other)
  Sender: FDA-Public Use
  Company Number: US-MERCK-1006USA03827

PATIENT
  Age: 66 Year
  Sex: Female

DRUGS (7)
  1. FOSAMAX [Suspect]
     Indication: OSTEOPOROSIS PROPHYLAXIS
     Route: 048
     Dates: start: 19970101, end: 20050101
  2. FOSAMAX [Suspect]
     Route: 048
     Dates: start: 20010101, end: 20020401
  3. FOSAMAX [Suspect]
     Route: 048
     Dates: start: 19990901, end: 20000801
  4. FOSAMAX PLUS D [Suspect]
     Route: 048
     Dates: start: 20050101, end: 20080628
  5. FOSAMAX [Suspect]
     Route: 048
     Dates: start: 20010101, end: 20020401
  6. FOSAMAX [Suspect]
     Route: 048
     Dates: start: 19990901, end: 20000801
  7. FOSAMAX [Suspect]
     Indication: OSTEOPOROSIS
     Route: 048
     Dates: start: 19970101, end: 20050101

REACTIONS (39)
  - HYPOKALAEMIA [None]
  - ROTATOR CUFF SYNDROME [None]
  - AORTIC VALVE CALCIFICATION [None]
  - INCREASED TENDENCY TO BRUISE [None]
  - CHEST PAIN [None]
  - ANAEMIA [None]
  - OSTEOPOROSIS [None]
  - NASAL SEPTUM DEVIATION [None]
  - JAW DISORDER [None]
  - SUBMANDIBULAR MASS [None]
  - REFLUX LARYNGITIS [None]
  - EYE IRRITATION [None]
  - CARDIAC MURMUR [None]
  - UPPER-AIRWAY COUGH SYNDROME [None]
  - DYSPHONIA [None]
  - CHOROIDAL NEOVASCULARISATION [None]
  - PAIN IN EXTREMITY [None]
  - SEBORRHOEIC KERATOSIS [None]
  - HAEMATOCHEZIA [None]
  - FALL [None]
  - HYPOTENSION [None]
  - TRANSIENT ISCHAEMIC ATTACK [None]
  - FEMUR FRACTURE [None]
  - ADVERSE EVENT [None]
  - GOITRE [None]
  - LOWER LIMB FRACTURE [None]
  - HIP FRACTURE [None]
  - FOOT DEFORMITY [None]
  - AUTOIMMUNE THYROIDITIS [None]
  - METASTASIS [None]
  - NASAL TURBINATE HYPERTROPHY [None]
  - MACULAR DEGENERATION [None]
  - TOOTH DISORDER [None]
  - RETINAL DETACHMENT [None]
  - GASTROOESOPHAGEAL REFLUX DISEASE [None]
  - BREAST CANCER IN SITU [None]
  - WEIGHT INCREASED [None]
  - SCIATICA [None]
  - COLONIC POLYP [None]
